FAERS Safety Report 22632348 (Version 1)
Quarter: 2023Q2

REPORT INFORMATION
  Report Type: Spontaneous
  Country: HU (occurrence: HU)
  Receive Date: 20230623
  Receipt Date: 20230623
  Transmission Date: 20230721
  Serious: Yes (Other)
  Sender: FDA-Public Use
  Company Number: HU-002147023-NVSC2023HU137629

PATIENT
  Age: 58 Year
  Sex: Female

DRUGS (5)
  1. DABRAFENIB [Suspect]
     Active Substance: DABRAFENIB
     Indication: Product used for unknown indication
     Dosage: UNK
     Route: 065
     Dates: start: 20150219
  2. TRAMETINIB [Suspect]
     Active Substance: TRAMETINIB
     Indication: Product used for unknown indication
     Dosage: UNK
     Route: 065
     Dates: start: 2016, end: 2017
  3. TRAMETINIB [Suspect]
     Active Substance: TRAMETINIB
     Dosage: 1.5 MG, QD
     Route: 065
     Dates: start: 2017
  4. DACARBAZINE [Concomitant]
     Active Substance: DACARBAZINE
     Indication: Product used for unknown indication
     Dosage: UNK
     Route: 065
     Dates: start: 2000
  5. DACARBAZINE [Concomitant]
     Active Substance: DACARBAZINE
     Dosage: UNK
     Route: 065
     Dates: start: 2011

REACTIONS (3)
  - Cardiac failure [Not Recovered/Not Resolved]
  - Ejection fraction decreased [Not Recovered/Not Resolved]
  - Urinary tract infection [Unknown]

NARRATIVE: CASE EVENT DATE: 20170101
